FAERS Safety Report 7520508-X (Version None)
Quarter: 2011Q2

REPORT INFORMATION
  Report Type: 
  Country: None (occurrence: None)
  Receive Date: 20110602
  Receipt Date: 20110523
  Transmission Date: 20111010
  Serious: Yes (Hospitalization, Other)
  Sender: FDA-Public Use
  Company Number: US-ELI_LILLY_AND_COMPANY-US201105007164

PATIENT
  Age: 76 Year
  Sex: Female

DRUGS (7)
  1. TORSEMIDE [Concomitant]
     Dosage: UNK
  2. PROTONIX [Concomitant]
     Dosage: UNK
  3. HUMALOG MIX 75/25 [Suspect]
     Indication: DIABETES MELLITUS
     Dosage: UNK, UNKNOWN
  4. IMODIUM MULTI-SYMPTOM RELIEF [Concomitant]
     Dosage: UNK
  5. LISINOPRIL [Concomitant]
     Dosage: UNK
  6. METOPROLOL TARTRATE [Concomitant]
     Dosage: UNK
  7. PAROXETINE HCL [Concomitant]
     Dosage: UNK

REACTIONS (5)
  - NEOPLASM MALIGNANT [None]
  - ABDOMINAL PAIN UPPER [None]
  - HIP ARTHROPLASTY [None]
  - VOMITING [None]
  - DIARRHOEA [None]
